FAERS Safety Report 7522143-6 (Version None)
Quarter: 2011Q2

REPORT INFORMATION
  Report Type: 
  Country: None (occurrence: None)
  Receive Date: 20110603
  Receipt Date: 20110601
  Transmission Date: 20111010
  Serious: Yes (Other)
  Sender: FDA-Public Use
  Company Number: CA-PFIZER INC-2010070052

PATIENT
  Age: 59 Year
  Sex: Female
  Weight: 63.5 kg

DRUGS (4)
  1. APO-DILTIAZ [Concomitant]
     Dosage: 240 MG, 1X/DAY
  2. COENZYME Q10 [Concomitant]
     Dosage: 90 MG, 1X/DAY
  3. ASPIRIN [Concomitant]
     Dosage: 81 MG, 1X/DAY
  4. LIPITOR [Suspect]
     Indication: BLOOD CHOLESTEROL INCREASED
     Dosage: 40 MG, 1X/DAY
     Route: 048
     Dates: start: 20081007, end: 20081020

REACTIONS (6)
  - INFLUENZA LIKE ILLNESS [None]
  - PULMONARY CONGESTION [None]
  - SWELLING FACE [None]
  - MYALGIA [None]
  - MUSCULAR WEAKNESS [None]
  - COUGH [None]
